FAERS Safety Report 4264887-8 (Version None)
Quarter: 2004Q1

REPORT INFORMATION
  Report Type: 
  Country: None (occurrence: None)
  Receive Date: 20040105
  Receipt Date: 20031224
  Transmission Date: 20041129
  Serious: Yes (Life-Threatening)
  Sender: FDA-Public Use
  Company Number: K200301935

PATIENT
  Age: 76 Year
  Sex: Female

DRUGS (7)
  1. ALTACE [Suspect]
     Indication: HYPERTENSION
     Dosage: 10 MG, QD, ORAL
     Route: 048
     Dates: start: 20030501, end: 20031128
  2. HYDROCHLOROTHIAZIDE [Suspect]
     Indication: HYPERTENSION
     Dosage: 50 MG, QD, ORAL
     Route: 048
     Dates: start: 20030701, end: 20031128
  3. EMCONCOR (BISOPROLOL) [Concomitant]
  4. FUROSEMIDE [Concomitant]
  5. DUREKAL (POTASSIUM CHLORIDE) [Concomitant]
  6. OPTINATE (RISEDRONATE SODIUM) [Concomitant]
  7. WARFARIN SODIUM [Concomitant]

REACTIONS (5)
  - AGRANULOCYTOSIS [None]
  - APLASIA [None]
  - C-REACTIVE PROTEIN INCREASED [None]
  - GENERAL PHYSICAL HEALTH DETERIORATION [None]
  - PYREXIA [None]
